FAERS Safety Report 25460161 (Version 1)
Quarter: 2025Q2

REPORT INFORMATION
  Report Type: Spontaneous
  Country: US (occurrence: US)
  Receive Date: 20250620
  Receipt Date: 20250620
  Transmission Date: 20250716
  Serious: Yes (Hospitalization, Other)
  Sender: IPCA
  Company Number: US-IPCA LABORATORIES LIMITED-IPC-2025-US-001583

PATIENT

DRUGS (1)
  1. METFORMIN [Suspect]
     Active Substance: METFORMIN HYDROCHLORIDE
     Indication: Product used for unknown indication
     Route: 048

REACTIONS (25)
  - Cardiotoxicity [Unknown]
  - Metabolic acidosis [Unknown]
  - Hyperlactacidaemia [Unknown]
  - Acute kidney injury [Unknown]
  - Sinus tachycardia [Unknown]
  - Nausea [Unknown]
  - Vomiting [Unknown]
  - Abdominal pain [Unknown]
  - Pancreatitis [Unknown]
  - Abdominal tenderness [Unknown]
  - Electrocardiogram QT prolonged [Unknown]
  - Toxicity to various agents [Unknown]
  - Condition aggravated [Unknown]
  - Tachypnoea [Unknown]
  - Mental status changes [Unknown]
  - Hypothermia [Unknown]
  - Hypotension [Unknown]
  - Pyrexia [Unknown]
  - Left ventricular dysfunction [Unknown]
  - Liver function test increased [Unknown]
  - Troponin increased [Unknown]
  - Right ventricular dysfunction [Unknown]
  - Cardiomyopathy [Unknown]
  - Overdose [Unknown]
  - Suicide attempt [Unknown]
